FAERS Safety Report 4647503-2 (Version None)
Quarter: 2005Q2

REPORT INFORMATION
  Report Type: 
  Country: None (occurrence: None)
  Receive Date: 20050428
  Receipt Date: 20050225
  Transmission Date: 20051028
  Serious: Yes (Hospitalization)
  Sender: FDA-Public Use
  Company Number: JP-ROCHE-397328

PATIENT
  Age: 36 Year
  Sex: Male

DRUGS (5)
  1. TAMIFLU [Suspect]
     Route: 048
     Dates: start: 20050222, end: 20050224
  2. TAMIFLU [Suspect]
     Route: 048
     Dates: start: 20050225, end: 20050225
  3. LOXONIN [Concomitant]
     Indication: DRUG USE FOR UNKNOWN INDICATION
     Route: 048
     Dates: start: 20050222, end: 20050225
  4. HUSCODE [Concomitant]
     Indication: DRUG USE FOR UNKNOWN INDICATION
     Route: 048
     Dates: start: 20050222, end: 20050225
  5. TEPRENONE [Concomitant]
     Indication: DRUG USE FOR UNKNOWN INDICATION
     Dosage: TRADE NAME REPORTED AS: SEFTAC
     Route: 048
     Dates: start: 20050222, end: 20050225

REACTIONS (6)
  - ABDOMINAL PAIN [None]
  - CULTURE STOOL POSITIVE [None]
  - DIARRHOEA [None]
  - ESCHERICHIA INFECTION [None]
  - LOWER GASTROINTESTINAL HAEMORRHAGE [None]
  - SCAN ABDOMEN ABNORMAL [None]
